FAERS Safety Report 19224162 (Version 2)
Quarter: 2022Q2

REPORT INFORMATION
  Report Type: Spontaneous
  Country: US (occurrence: None)
  Receive Date: 20210505
  Receipt Date: 20220426
  Transmission Date: 20220721
  Serious: No
  Sender: FDA-Public Use
  Company Number: US-ROCHE-2633572

PATIENT
  Sex: Female
  Weight: 75.818 kg

DRUGS (25)
  1. ESBRIET [Suspect]
     Active Substance: PIRFENIDONE
     Indication: Dyspnoea
     Dosage: 1 TAB BY MOUTH THREE TIMES A DAY WITH MEALS
     Route: 048
     Dates: start: 20200520
  2. ESBRIET [Suspect]
     Active Substance: PIRFENIDONE
     Indication: Idiopathic pulmonary fibrosis
     Dosage: 2 PILLS 3 TIMES A DAY
     Route: 048
  3. ESBRIET [Suspect]
     Active Substance: PIRFENIDONE
     Indication: Interstitial lung disease
  4. VENTOLIN HFA [Concomitant]
     Active Substance: ALBUTEROL SULFATE
     Dosage: 90 MCG
  5. ASPIRIN [Concomitant]
     Active Substance: ASPIRIN
     Route: 048
  6. LOTENSIN (UNITED STATES) [Concomitant]
  7. TESSALON [Concomitant]
     Active Substance: BENZONATATE
     Route: 048
  8. ZYRTEC [Concomitant]
     Active Substance: CETIRIZINE HYDROCHLORIDE
     Route: 048
  9. PERIDEX (UNITED STATES) [Concomitant]
     Route: 048
  10. CELEXA [Concomitant]
     Active Substance: CITALOPRAM HYDROBROMIDE
  11. PLAVIX [Concomitant]
     Active Substance: CLOPIDOGREL BISULFATE
     Route: 048
  12. MUCINEX DM [Concomitant]
     Active Substance: DEXTROMETHORPHAN HYDROBROMIDE\GUAIFENESIN
     Dosage: 30-600 MG
  13. BENADRYL ALLERGY [Concomitant]
     Active Substance: DIPHENHYDRAMINE HYDROCHLORIDE
     Route: 048
  14. NEXIUM [Concomitant]
     Active Substance: ESOMEPRAZOLE MAGNESIUM
     Route: 048
  15. ZETIA [Concomitant]
     Active Substance: EZETIMIBE
     Route: 048
  16. PEPCID [Concomitant]
     Active Substance: FAMOTIDINE
     Route: 048
  17. LASIX [Concomitant]
     Active Substance: FUROSEMIDE
     Route: 048
  18. GLUCOSAMINE DAILY COMPLEX [Concomitant]
     Dosage: 1050-400-100 MG-UNIT-MG
     Route: 048
  19. XYZAL [Concomitant]
     Active Substance: LEVOCETIRIZINE DIHYDROCHLORIDE
     Route: 048
  20. MAGNESIUM OXIDE [Concomitant]
     Active Substance: MAGNESIUM OXIDE
     Route: 048
  21. SINGULAIR [Concomitant]
     Active Substance: MONTELUKAST SODIUM
     Route: 048
  22. DITROPAN [Concomitant]
     Active Substance: OXYBUTYNIN CHLORIDE
     Route: 048
  23. PROTONIX [Concomitant]
     Active Substance: PANTOPRAZOLE SODIUM
  24. KLOR-CON [Concomitant]
     Active Substance: POTASSIUM CHLORIDE
     Dosage: 10 MEQ
  25. SODIUM BICARBONATE [Concomitant]
     Active Substance: SODIUM BICARBONATE
     Route: 042

REACTIONS (5)
  - Nausea [Unknown]
  - Dyspepsia [Unknown]
  - Hiatus hernia [Unknown]
  - Sinusitis bacterial [Unknown]
  - Chest pain [Unknown]
